FAERS Safety Report 5273940-1 (Version None)
Quarter: 2007Q1

REPORT INFORMATION
  Report Type: 
  Country: None (occurrence: None)
  Receive Date: 20070323
  Receipt Date: 20070315
  Transmission Date: 20070707
  Serious: Yes (Other)
  Sender: FDA-Public Use
  Company Number: IT-ELI_LILLY_AND_COMPANY-IT200611002247

PATIENT
  Age: 70 Year
  Sex: Female

DRUGS (4)
  1. HUMULIN 70/30 [Suspect]
     Dosage: 8 U, DAILY (1/D)
     Route: 058
     Dates: start: 20020101
  2. HUMALOG [Concomitant]
     Dosage: 8 U, DAILY (1/D)
     Route: 058
     Dates: start: 20020101
  3. ANTIHYPERTENSIVES [Concomitant]
  4. TOTALIP [Concomitant]

REACTIONS (7)
  - AGITATION [None]
  - AMNESIA [None]
  - FRUSTRATION [None]
  - HYPERGLYCAEMIA [None]
  - MOVEMENT DISORDER [None]
  - SOMNOLENCE [None]
  - TREMOR [None]
